FAERS Safety Report 9399575 (Version 1)
Quarter: 2013Q3

REPORT INFORMATION
  Report Type: Spontaneous
  Country: GB (occurrence: None)
  Receive Date: 20130710
  Receipt Date: 20130710
  Transmission Date: 20140515
  Serious: Yes (Hospitalization)
  Sender: FDA-Public Use
  Company Number: AUR-APL-2013-05599

PATIENT
  Age: 63 Year
  Sex: Male

DRUGS (1)
  1. NAPROXEN (NAPROXEN) [Suspect]

REACTIONS (9)
  - Drug reaction with eosinophilia and systemic symptoms [None]
  - Rash maculo-papular [None]
  - Pruritus [None]
  - Pyrexia [None]
  - Hallucination, visual [None]
  - Dyspnoea [None]
  - Pleuritic pain [None]
  - Abdominal pain [None]
  - Diarrhoea [None]
